FAERS Safety Report 6583071-6 (Version None)
Quarter: 2010Q1

REPORT INFORMATION
  Report Type: 
  Country: None (occurrence: None)
  Receive Date: 20100216
  Receipt Date: 20100201
  Transmission Date: 20100710
  Serious: Yes (Other)
  Sender: FDA-Public Use
  Company Number: US-ROCHE-683162

PATIENT
  Age: 64 Year
  Sex: Female
  Weight: 59 kg

DRUGS (13)
  1. KLONOPIN [Suspect]
     Indication: DRUG USE FOR UNKNOWN INDICATION
     Dosage: CLONAZEPAM WAFERS; FORM:PILL
     Route: 065
     Dates: start: 20090928, end: 20090928
  2. NEURONTIN [Suspect]
     Indication: TEMPORAL LOBE EPILEPSY
     Route: 048
  3. NEURONTIN [Suspect]
     Dosage: HARD CAPSULE;DOSE INCREASED
     Route: 048
     Dates: start: 20091027
  4. NEURONTIN [Suspect]
     Dosage: DOSE REDUCED
     Route: 048
     Dates: start: 20091028
  5. NEURONTIN [Suspect]
     Dosage: DOSE INCREASED
     Route: 048
     Dates: start: 20091031
  6. NEURONTIN [Suspect]
     Route: 048
     Dates: start: 20091105
  7. NEURONTIN [Suspect]
     Dosage: THERAPY STARTED 1 YEAR BEFORE 20 OCTOBER 2009
     Route: 048
  8. GEODON [Suspect]
     Indication: PARANOIA
     Dosage: THERAPY STARTED 1 YEAR BEFORE 20 OCTOBER 2009
     Route: 048
  9. GEODON [Suspect]
     Dosage: STOPPED IN OCTOBER 2009
     Route: 048
     Dates: start: 20091020
  10. GEODON [Suspect]
     Route: 048
  11. SEROQUEL [Suspect]
     Indication: DRUG USE FOR UNKNOWN INDICATION
     Route: 065
     Dates: end: 20091109
  12. LEXAPRO [Concomitant]
  13. COUMADIN [Concomitant]
     Dosage: INDICATION:HYPERCOAGULATE ABILITY

REACTIONS (6)
  - ANXIETY [None]
  - DEPRESSION [None]
  - ELECTROENCEPHALOGRAM ABNORMAL [None]
  - INSOMNIA [None]
  - MOROSE [None]
  - PSYCHOMOTOR HYPERACTIVITY [None]
